FAERS Safety Report 12183936 (Version 1)
Quarter: 2016Q1

REPORT INFORMATION
  Report Type: Spontaneous
  Country: US (occurrence: US)
  Receive Date: 20160316
  Receipt Date: 20160316
  Transmission Date: 20160526
  Serious: No
  Sender: FDA-Public Use
  Company Number: US-WARNER CHILCOTT, LLC-1049157

PATIENT
  Age: 78 Year
  Sex: Female

DRUGS (2)
  1. ESTRACE [Suspect]
     Active Substance: ESTRADIOL
     Indication: PROPHYLAXIS
     Route: 067
     Dates: start: 20151007
  2. ESTRACE [Suspect]
     Active Substance: ESTRADIOL
     Indication: DYSPAREUNIA
     Route: 067
     Dates: start: 20151007

REACTIONS (2)
  - Pruritus generalised [Unknown]
  - Vulvovaginal pruritus [Unknown]
